FAERS Safety Report 18638390 (Version 1)
Quarter: 2020Q4

REPORT INFORMATION
  Report Type: Report from Study
  Country: US (occurrence: US)
  Receive Date: 20201218
  Receipt Date: 20201218
  Transmission Date: 20210114
  Serious: No
  Sender: FDA-Public Use
  Company Number: US-REGENERON PHARMACEUTICALS, INC.-2020-86932

PATIENT

DRUGS (1)
  1. EYLEA [Suspect]
     Active Substance: AFLIBERCEPT
     Indication: TYPE 2 DIABETES MELLITUS
     Dosage: 2 MG/0.05 ML, EVERY 28 DAYS
     Route: 031
     Dates: start: 20200511

REACTIONS (5)
  - Injection site pain [Not Recovered/Not Resolved]
  - Off label use [Unknown]
  - Wrong technique in product usage process [Not Recovered/Not Resolved]
  - Eye irritation [Not Recovered/Not Resolved]
  - Ocular hyperaemia [Not Recovered/Not Resolved]
